FAERS Safety Report 6588804-0 (Version None)
Quarter: 2010Q1

REPORT INFORMATION
  Report Type: 
  Country: None (occurrence: None)
  Receive Date: 20100218
  Receipt Date: 20100210
  Transmission Date: 20100710
  Serious: Yes (Life-Threatening, Hospitalization, Other)
  Sender: FDA-Public Use
  Company Number: FR-JNJFOC-20091104939

PATIENT
  Age: 77 Year
  Sex: Female

DRUGS (10)
  1. TAVANIC [Suspect]
     Indication: LUNG DISORDER
     Route: 065
     Dates: start: 20091011, end: 20091017
  2. HEPARIN [Suspect]
     Indication: VENOUS THROMBOSIS
     Route: 065
     Dates: start: 20091012, end: 20091022
  3. FORTUM [Suspect]
     Indication: LUNG DISORDER
     Route: 065
     Dates: start: 20091011, end: 20091019
  4. BACTRIM [Suspect]
     Indication: LUNG DISORDER
     Route: 065
     Dates: start: 20091012, end: 20091019
  5. ZYVOXID [Suspect]
     Indication: LUNG DISORDER
     Route: 065
     Dates: start: 20091012, end: 20091017
  6. FLUINDIONE [Concomitant]
     Route: 065
  7. SECTRAL [Concomitant]
     Route: 065
  8. NOVONORM [Concomitant]
     Route: 065
  9. HEMIGOXINE NATIVELLE [Concomitant]
     Route: 065
  10. ACTOS [Concomitant]
     Route: 065

REACTIONS (7)
  - ACUTE RESPIRATORY DISTRESS SYNDROME [None]
  - ANAEMIA [None]
  - CONDITION AGGRAVATED [None]
  - DEEP VEIN THROMBOSIS [None]
  - DUODENAL ULCER [None]
  - HEPARIN-INDUCED THROMBOCYTOPENIA [None]
  - MELAENA [None]
